FAERS Safety Report 14461385 (Version 3)
Quarter: 2018Q3

REPORT INFORMATION
  Report Type: Spontaneous
  Country: US (occurrence: US)
  Receive Date: 20180130
  Receipt Date: 20180726
  Transmission Date: 20181010
  Serious: Yes (Other)
  Sender: FDA-Public Use
  Company Number: US-PFIZER INC-2017520452

PATIENT
  Age: 74 Year
  Sex: Female

DRUGS (1)
  1. XELJANZ XR [Suspect]
     Active Substance: TOFACITINIB CITRATE
     Dosage: 11 MG, UNK
     Dates: start: 201601

REACTIONS (7)
  - Loss of consciousness [Unknown]
  - Blood pressure decreased [Unknown]
  - Peripheral swelling [Unknown]
  - Cough [Unknown]
  - Blood sodium decreased [Unknown]
  - Polyuria [Unknown]
  - Blood potassium decreased [Unknown]
